FAERS Safety Report 10071579 (Version 5)
Quarter: 2020Q1

REPORT INFORMATION
  Report Type: Report from Study
  Country: GB (occurrence: GB)
  Receive Date: 20140410
  Receipt Date: 20200119
  Transmission Date: 20200409
  Serious: Yes (Hospitalization, Other)
  Sender: FDA-Public Use
  Company Number: PHFR2014GB002278

PATIENT
  Age: 34 Year
  Sex: Male

DRUGS (1)
  1. GILENYA [Suspect]
     Active Substance: FINGOLIMOD HYDROCHLORIDE
     Indication: MULTIPLE SCLEROSIS
     Dosage: 0.5 MG, QD
     Route: 048
     Dates: start: 20140205

REACTIONS (3)
  - Electrocardiogram PR shortened [Unknown]
  - Atrioventricular block second degree [Unknown]
  - Electrocardiogram P wave abnormal [Recovered/Resolved]

NARRATIVE: CASE EVENT DATE: 20140205
